FAERS Safety Report 8893281 (Version 1)
Quarter: 2012Q4

REPORT INFORMATION
  Report Type: Report from Study
  Country: DE (occurrence: DE)
  Receive Date: 20121108
  Receipt Date: 20121108
  Transmission Date: 20130627
  Serious: Yes (Hospitalization, Other)
  Sender: FDA-Public Use
  Company Number: PHHO2010DE16790

PATIENT
  Age: 73 Year
  Sex: Male
  Weight: 93 kg

DRUGS (2)
  1. ALISKIREN [Suspect]
     Indication: CARDIAC FAILURE ACUTE
     Route: 048
     Dates: start: 20100901, end: 20101005
  2. ALISKIREN [Suspect]
     Dosage: Code not broken
     Route: 048
     Dates: start: 20101006

REACTIONS (5)
  - Renal cancer [Unknown]
  - Oedema peripheral [Recovered/Resolved with Sequelae]
  - Necrosis [Recovered/Resolved with Sequelae]
  - Ulcer [Unknown]
  - Concomitant disease progression [Recovered/Resolved with Sequelae]
